FAERS Safety Report 7281988-0 (Version None)
Quarter: 2011Q1

REPORT INFORMATION
  Report Type: 
  Country: None (occurrence: None)
  Receive Date: 20110208
  Receipt Date: 20110204
  Transmission Date: 20110831
  Serious: Yes (Hospitalization)
  Sender: FDA-Public Use
  Company Number: DE-ABBOTT-11P-062-0700818-00

PATIENT
  Sex: Female
  Weight: 81 kg

DRUGS (9)
  1. AMLODIPINE [Concomitant]
     Indication: PRODUCT USED FOR UNKNOWN INDICATION
     Dosage: 5 MG OD
     Route: 048
  2. SIMVASTATIN [Concomitant]
     Indication: PRODUCT USED FOR UNKNOWN INDICATION
     Dosage: 40 MG OD
     Route: 048
  3. ASPIRIN [Concomitant]
     Indication: PRODUCT USED FOR UNKNOWN INDICATION
     Dosage: 100 MG OD
     Route: 048
  4. BUPRENORPHINE [Concomitant]
     Indication: PRODUCT USED FOR UNKNOWN INDICATION
  5. ORFIRIL [Concomitant]
     Indication: PRODUCT USED FOR UNKNOWN INDICATION
     Dosage: 300 MG BID
  6. PANTOPRAZOL [Concomitant]
     Indication: PRODUCT USED FOR UNKNOWN INDICATION
     Dosage: 40 MG OD
     Route: 048
  7. HUMIRA [Suspect]
     Indication: RHEUMATOID ARTHRITIS
     Route: 058
     Dates: start: 20100601
  8. METOCLOPRAMID [Concomitant]
     Indication: PRODUCT USED FOR UNKNOWN INDICATION
     Dosage: 20 DROPS TID
     Route: 048
  9. HUMALOG [Concomitant]
     Indication: PRODUCT USED FOR UNKNOWN INDICATION
     Dosage: 10 IU TID

REACTIONS (6)
  - CYSTITIS [None]
  - UROSEPSIS [None]
  - LEUKOCYTOSIS [None]
  - HYPERURICAEMIA [None]
  - TOXIC ENCEPHALOPATHY [None]
  - RENAL FAILURE [None]
